FAERS Safety Report 5623960-X (Version None)
Quarter: 2008Q1

REPORT INFORMATION
  Report Type: 
  Country: None (occurrence: None)
  Receive Date: 20080124
  Receipt Date: 20080115
  Transmission Date: 20080703
  Serious: Yes (Hospitalization)
  Sender: FDA-Public Use
  Company Number: 200812764

PATIENT
  Age: 39 Year
  Sex: Female
  Weight: 74.3899 kg

DRUGS (2)
  1. CARIMUNE NF [Suspect]
     Indication: MYASTHENIA GRAVIS
     Dosage: 30 G DAILY IV, IV, IV
     Route: 042
     Dates: start: 20071116, end: 20071120
  2. CARIMUNE NF [Suspect]

REACTIONS (8)
  - DEHYDRATION [None]
  - DRUG INEFFECTIVE [None]
  - HYPOTENSION [None]
  - INFECTION [None]
  - LOSS OF CONSCIOUSNESS [None]
  - MENINGITIS ASEPTIC [None]
  - PAIN [None]
  - TACHYCARDIA [None]
